FAERS Safety Report 18155209 (Version 1)
Quarter: 2020Q3

REPORT INFORMATION
  Report Type: Spontaneous
  Country: US (occurrence: US)
  Receive Date: 20200817
  Receipt Date: 20200817
  Transmission Date: 20201103
  Serious: No
  Sender: FDA-Public Use
  Company Number: US-ALLERGAN-1941295US

PATIENT
  Age: 75 Year
  Sex: Male
  Weight: 115.65 kg

DRUGS (3)
  1. ANDRODERM [Suspect]
     Active Substance: TESTOSTERONE
     Dosage: 2 G
     Route: 062
     Dates: start: 201907
  2. ANDRODERM [Suspect]
     Active Substance: TESTOSTERONE
     Dosage: 4 G
     Route: 062
     Dates: start: 201908
  3. ANDRODERM [Suspect]
     Active Substance: TESTOSTERONE
     Indication: BLOOD TESTOSTERONE DECREASED
     Dosage: 4 MG, QD
     Route: 062

REACTIONS (3)
  - Fatigue [Recovering/Resolving]
  - Drug ineffective [Unknown]
  - Chills [Recovering/Resolving]
